FAERS Safety Report 8647257 (Version 3)
Quarter: 2018Q4

REPORT INFORMATION
  Report Type: Spontaneous
  Country: FR (occurrence: FR)
  Receive Date: 20120703
  Receipt Date: 20181030
  Transmission Date: 20190205
  Serious: Yes (Life-Threatening)
  Sender: FDA-Public Use
  Company Number: FR-SANOFI-AVENTIS-2012SA045407

PATIENT
  Age: 22 Year
  Sex: Female

DRUGS (19)
  1. FLUOROURACIL. [Suspect]
     Active Substance: FLUOROURACIL
     Indication: SQUAMOUS CELL CARCINOMA
     Dosage: 5587.5 MG,UNK
     Route: 042
     Dates: start: 20120312, end: 20120417
  2. TAXOTERE [Suspect]
     Active Substance: DOCETAXEL
     Indication: SQUAMOUS CELL CARCINOMA
     Dosage: 111.8 MG,UNK
     Route: 042
     Dates: start: 20120312, end: 20120312
  3. ACTISKENAN [Concomitant]
     Active Substance: MORPHINE SULFATE
     Indication: PAIN
     Dosage: 15 MG,PRN
  4. EMEND [APREPITANT] [Concomitant]
     Dosage: UNK UNK,QD
     Route: 048
     Dates: start: 20120313, end: 20120314
  5. SKENAN [Concomitant]
     Active Substance: MORPHINE SULFATE
     Dosage: 50 MG,BID
     Route: 048
  6. DAFALGAN [Concomitant]
     Active Substance: ACETAMINOPHEN
     Indication: PAIN
     Dosage: 1 G,PRN
     Route: 048
  7. CISPLATIN. [Suspect]
     Active Substance: CISPLATIN
     Indication: SQUAMOUS CELL CARCINOMA
     Dosage: 111.8 MG,UNK
     Route: 042
     Dates: start: 20120312, end: 20120312
  8. LYRICA [Concomitant]
     Active Substance: PREGABALIN
     Dosage: 50 MG,BID
     Route: 048
     Dates: start: 20120313, end: 20120316
  9. CEFAZOLIN [Concomitant]
     Active Substance: CEFAZOLIN
     Dosage: UNK UNK,QD
     Route: 042
     Dates: start: 20120315, end: 20120315
  10. XANAX [Concomitant]
     Active Substance: ALPRAZOLAM
     Dosage: UNK UNK,PRN
     Route: 048
  11. ORAMORPH [Concomitant]
     Active Substance: MORPHINE SULFATE
     Dosage: 10 MG,UNK
     Route: 048
     Dates: start: 20120315, end: 20120315
  12. SPASFON [PHLOROGLUCINOL] [Concomitant]
     Dosage: 1 DF,TID
     Route: 042
     Dates: start: 20120317, end: 20120317
  13. EMEND [APREPITANT] [Concomitant]
     Dosage: UNK UNK,QD
     Route: 048
     Dates: start: 20120312, end: 20120312
  14. ZOPHREN [ONDANSETRON HYDROCHLORIDE] [Concomitant]
     Active Substance: ONDANSETRON
     Dosage: 8 MG,BID
     Route: 042
     Dates: start: 20120312, end: 20120312
  15. LEVOTHYROX [Concomitant]
     Active Substance: LEVOTHYROXINE
     Dosage: 75 UG,QD
  16. SOLU-MEDROL [Concomitant]
     Active Substance: METHYLPREDNISOLONE SODIUM SUCCINATE
     Dosage: UNK
     Route: 042
     Dates: start: 20120312, end: 20120314
  17. PRIMPERAN [Concomitant]
     Active Substance: METOCLOPRAMIDE HYDROCHLORIDE
     Dosage: 10 MG,PRN
     Route: 042
     Dates: start: 20120312, end: 20120312
  18. FORLAX [Concomitant]
     Active Substance: POLYETHYLENE GLYCOL 4000
     Dosage: 1 DF,BID
     Route: 048
     Dates: start: 20120312, end: 20120312
  19. SOLUPRED [METHYLPREDNISOLONE] [Concomitant]
     Dosage: UNK
     Route: 048
     Dates: start: 20120312, end: 20120314

REACTIONS (1)
  - Posterior reversible encephalopathy syndrome [Recovered/Resolved]

NARRATIVE: CASE EVENT DATE: 20120316
